FAERS Safety Report 6890784-5 (Version None)
Quarter: 2010Q3

REPORT INFORMATION
  Report Type: 
  Country: None (occurrence: None)
  Receive Date: 20100731
  Receipt Date: 20090320
  Transmission Date: 20110219
  Serious: No
  Sender: FDA-Public Use
  Company Number: US-PFIZER INC-2009159392

PATIENT
  Sex: Male
  Weight: 114.3 kg

DRUGS (15)
  1. LIPITOR [Suspect]
     Indication: BLOOD CHOLESTEROL INCREASED
     Dosage: 40 MG, 1X/DAY
     Route: 048
  2. HUMALOG [Concomitant]
     Dosage: UNK
  3. LANTUS [Concomitant]
     Dosage: UNK
  4. ACETYLSALICYLIC ACID [Concomitant]
     Dosage: UNK
  5. VITAMIN D [Concomitant]
     Dosage: UNK
  6. OMEGA-3 TRIGLYCERIDES [Concomitant]
     Dosage: UNK
  7. MAGNESIUM [Concomitant]
     Dosage: UNK
  8. CALCIUM [Concomitant]
     Dosage: UNK
  9. ZINC [Concomitant]
     Dosage: UNK
  10. CALCITRIOL [Concomitant]
     Dosage: UNK
  11. COLCHICINE [Concomitant]
     Dosage: UNK
  12. ALLOPURINOL [Concomitant]
     Dosage: UNK
  13. PREVACID [Concomitant]
     Dosage: UNK
  14. LISINOPRIL [Concomitant]
     Dosage: UNK
  15. REGLAN [Concomitant]

REACTIONS (2)
  - HEPATOMEGALY [None]
  - PROTEIN URINE PRESENT [None]
